FAERS Safety Report 6908948-0 (Version None)
Quarter: 2010Q3

REPORT INFORMATION
  Report Type: 
  Country: None (occurrence: None)
  Receive Date: 20100805
  Receipt Date: 20100722
  Transmission Date: 20110219
  Serious: Yes (Life-Threatening, Hospitalization)
  Sender: FDA-Public Use
  Company Number: CH-KINGPHARMUSA00001-K201000978

PATIENT
  Age: 66 Year
  Sex: Female

DRUGS (12)
  1. FLECTOR [Suspect]
     Indication: PAIN
     Dosage: 1 PATCH, QD
     Route: 061
     Dates: end: 20100420
  2. DIAMICRON [Suspect]
     Dosage: 80 MG, QD
     Route: 048
     Dates: start: 20060101, end: 20100420
  3. RENITEN [Suspect]
     Dosage: 20 MG, QD
     Route: 048
     Dates: end: 20100420
  4. DIAMOX SRC [Concomitant]
     Dosage: 500 MG, UNK
     Route: 048
     Dates: end: 20100420
  5. PANTOPRAZOLE SODIUM [Concomitant]
     Dosage: 40 MG, UNK
     Route: 048
     Dates: end: 20100420
  6. DUPHALAC [Concomitant]
     Dosage: UNK
     Route: 048
     Dates: end: 20100420
  7. AMINOPHYLLINE [Concomitant]
     Dosage: UNK
     Route: 048
     Dates: end: 20100420
  8. FRAGMIN [Concomitant]
     Dosage: UNK
     Route: 059
     Dates: end: 20100420
  9. ACETAMINOPHEN [Concomitant]
     Dosage: 1000 MG, UNK
     Route: 048
     Dates: end: 20100420
  10. TORASEMID [Concomitant]
     Dosage: 20 MG, UNK
     Dates: end: 20100420
  11. LASIX [Concomitant]
     Dosage: 40 MG, UNK
     Dates: end: 20100420
  12. TRANSTEC [Concomitant]

REACTIONS (6)
  - COMA [None]
  - HYPOGLYCAEMIA [None]
  - METABOLIC ENCEPHALOPATHY [None]
  - OEDEMA [None]
  - PAIN IN EXTREMITY [None]
  - UNRESPONSIVE TO STIMULI [None]
